FAERS Safety Report 12987572 (Version 1)
Quarter: 2016Q4

REPORT INFORMATION
  Report Type: Spontaneous
  Country: US (occurrence: US)
  Receive Date: 20161130
  Receipt Date: 20161130
  Transmission Date: 20170207
  Serious: No
  Sender: FDA-Public Use
  Company Number: US-SA-2016SA071671

PATIENT
  Age: 89 Year
  Sex: Male

DRUGS (3)
  1. RENVELA [Suspect]
     Active Substance: SEVELAMER CARBONATE
     Route: 065
     Dates: start: 201603, end: 201603
  2. IRON [Concomitant]
     Active Substance: IRON
  3. ALLOPURINOL. [Concomitant]
     Active Substance: ALLOPURINOL
     Indication: GOUT

REACTIONS (1)
  - Muscle spasms [Unknown]
